FAERS Safety Report 7439220-0 (Version None)
Quarter: 2011Q2

REPORT INFORMATION
  Report Type: 
  Country: None (occurrence: None)
  Receive Date: 20110427
  Receipt Date: 20110419
  Transmission Date: 20111010
  Serious: Yes (Other)
  Sender: FDA-Public Use
  Company Number: US-BAYER-2011-012864

PATIENT
  Age: 43 Year
  Sex: Female

DRUGS (2)
  1. INTERFERON BETA-1B [Suspect]
     Indication: MULTIPLE SCLEROSIS
     Dosage: UNK
     Route: 058
     Dates: start: 20100729, end: 20101101
  2. INTERFERON BETA-1B [Suspect]
     Dosage: 2 MIU, QOD
     Route: 058
     Dates: start: 20110203

REACTIONS (1)
  - CARDIAC DISORDER [None]
